FAERS Safety Report 23697968 (Version 4)
Quarter: 2025Q4

REPORT INFORMATION
  Report Type: Spontaneous
  Country: CA (occurrence: CA)
  Receive Date: 20240402
  Receipt Date: 20251224
  Transmission Date: 20260118
  Serious: Yes (Other)
  Sender: OTSUKA
  Company Number: CA-OTSUKA-2024_008348

PATIENT
  Age: 54 Year
  Sex: Female

DRUGS (2)
  1. ABILIFY MAINTENA [Suspect]
     Active Substance: ARIPIPRAZOLE
     Indication: Product used for unknown indication
     Dosage: UNK, QM (EVERY MONTH)
     Route: 065
  2. ABILIFY [Suspect]
     Active Substance: ARIPIPRAZOLE
     Indication: Product used for unknown indication
     Dosage: UNK
     Route: 065

REACTIONS (20)
  - Physical disability [Unknown]
  - Balance disorder [Unknown]
  - Generalised oedema [Unknown]
  - Emotional disorder [Unknown]
  - Brain fog [Unknown]
  - Piriformis syndrome [Unknown]
  - Impaired work ability [Unknown]
  - Fibromyalgia [Unknown]
  - Adverse event [Unknown]
  - Musculoskeletal discomfort [Unknown]
  - Emotional distress [Unknown]
  - Neuralgia [Unknown]
  - Feeling abnormal [Unknown]
  - Muscle spasms [Unknown]
  - Musculoskeletal stiffness [Unknown]
  - Compulsive shopping [Unknown]
  - Refusal of treatment by patient [Unknown]
  - Treatment noncompliance [Unknown]
  - Product availability issue [Unknown]
  - Therapy interrupted [Unknown]

NARRATIVE: CASE EVENT DATE: 20210101
